FAERS Safety Report 5624778-4 (Version None)
Quarter: 2008Q1

REPORT INFORMATION
  Report Type: 
  Country: None (occurrence: None)
  Receive Date: 20080208
  Receipt Date: 20080122
  Transmission Date: 20080703
  Serious: Yes (Hospitalization)
  Sender: FDA-Public Use
  Company Number: CIP07002292

PATIENT
  Age: 67 Year
  Sex: Male
  Weight: 70.3 kg

DRUGS (16)
  1. ASACOL [Suspect]
     Indication: CROHN'S DISEASE
     Dosage: 800 MG 3 DAILY, ORAL; 400 MG 3 TIMES DAILY, ORAL
     Route: 048
     Dates: start: 20050101, end: 20070101
  2. ASACOL [Suspect]
     Indication: CROHN'S DISEASE
     Dosage: 800 MG 3 DAILY, ORAL; 400 MG 3 TIMES DAILY, ORAL
     Route: 048
     Dates: start: 20070101
  3. PAXIL [Concomitant]
  4. ATENOLOL [Concomitant]
  5. CALCIUM (CALCIUM) [Concomitant]
  6. VITAMIN C /00008001/ (ASCORBIC ACID) [Concomitant]
  7. PERCOCET /00867901/ (PARACETAMOL, OXYCODONE HYDROCHLORIDE) [Concomitant]
  8. MULTIVITAMINS (ASCORBIC ACID, ERGOCALCIFEROL, FOLIC ACID, NICOTINAMIDE [Concomitant]
  9. LACTULOSE [Concomitant]
  10. PROTONIX /01263201/ (PANTOPRAZOLE) [Concomitant]
  11. CYMBALTA [Concomitant]
  12. FLOMAX /00889901/ (MORNIFLUMATE) [Concomitant]
  13. LORTAB [Concomitant]
  14. ACULAR /01001802/ (KETOROLAC TROMETHAMINE) [Concomitant]
  15. NEXIUM [Concomitant]
  16. VERSED (MIDAZOLAM HYDROCODONE) [Concomitant]

REACTIONS (40)
  - ABDOMINAL DISTENSION [None]
  - ABDOMINAL PAIN [None]
  - ABDOMINAL TENDERNESS [None]
  - ASTHENIA [None]
  - BLOOD CREATINE INCREASED [None]
  - BLOOD PHOSPHORUS INCREASED [None]
  - CEREBROVASCULAR ACCIDENT [None]
  - CHANGE OF BOWEL HABIT [None]
  - CHRONIC OBSTRUCTIVE PULMONARY DISEASE [None]
  - COLONIC STENOSIS [None]
  - CONDITION AGGRAVATED [None]
  - CONSTIPATION [None]
  - CROHN'S DISEASE [None]
  - DEHYDRATION [None]
  - DIARRHOEA [None]
  - DIVERTICULITIS [None]
  - DIVERTICULUM [None]
  - DYSPNOEA [None]
  - FAECALOMA [None]
  - FATIGUE [None]
  - FLANK PAIN [None]
  - GASTRITIS [None]
  - GASTROINTESTINAL HAEMORRHAGE [None]
  - GASTROINTESTINAL SOUNDS ABNORMAL [None]
  - GENERALISED OEDEMA [None]
  - HYDRONEPHROSIS [None]
  - IRON DEFICIENCY ANAEMIA [None]
  - LARGE INTESTINAL OBSTRUCTION [None]
  - LETHARGY [None]
  - MALAISE [None]
  - NEPHROLITHIASIS [None]
  - PARKINSON'S DISEASE [None]
  - PLATELET COUNT INCREASED [None]
  - PNEUMONIA [None]
  - PNEUMONIA MYCOPLASMAL [None]
  - POSTOPERATIVE ILEUS [None]
  - SMALL INTESTINAL OBSTRUCTION [None]
  - URETERIC OBSTRUCTION [None]
  - WAIST CIRCUMFERENCE INCREASED [None]
  - WHITE BLOOD CELL COUNT INCREASED [None]
